FAERS Safety Report 4697185-9 (Version None)
Quarter: 2005Q2

REPORT INFORMATION
  Report Type: 
  Country: None (occurrence: None)
  Receive Date: 20050622
  Receipt Date: 20050609
  Transmission Date: 20051028
  Serious: Yes (Hospitalization)
  Sender: FDA-Public Use
  Company Number: FR-JNJFOC-20050604073

PATIENT
  Age: 78 Year
  Sex: Female

DRUGS (6)
  1. TOPALGIC [Suspect]
     Route: 049
  2. DIGOXIN [Concomitant]
     Indication: ATRIAL FIBRILLATION
     Route: 049
  3. COZAAR [Concomitant]
     Indication: ESSENTIAL HYPERTENSION
     Route: 049
  4. HYPERIUM [Concomitant]
     Indication: ESSENTIAL HYPERTENSION
     Route: 049
  5. PREVISCAN [Concomitant]
     Route: 049
  6. LASILIX [Concomitant]
     Route: 049

REACTIONS (2)
  - OVERDOSE [None]
  - PURPURA [None]
